FAERS Safety Report 7512106-9 (Version None)
Quarter: 2011Q2

REPORT INFORMATION
  Report Type: 
  Country: None (occurrence: None)
  Receive Date: 20110520
  Receipt Date: 20110511
  Transmission Date: 20111010
  Serious: Yes (Hospitalization, Other)
  Sender: FDA-Public Use
  Company Number: BR-000283

PATIENT
  Sex: Female
  Weight: 16 kg

DRUGS (1)
  1. NAGLAZYME [Suspect]
     Indication: MUCOPOLYSACCHARIDOSIS VI
     Dosage: 1 MG/KG 1X/WEEK, INTRAVENOUS DRIP
     Route: 041
     Dates: start: 20070927

REACTIONS (2)
  - SOMATOSENSORY EVOKED POTENTIALS ABNORMAL [None]
  - SPINAL CORD COMPRESSION [None]
